FAERS Safety Report 9820654 (Version 1)
Quarter: 2014Q1

REPORT INFORMATION
  Report Type: Spontaneous
  Country: AT (occurrence: AT)
  Receive Date: 20140116
  Receipt Date: 20140116
  Transmission Date: 20141002
  Serious: Yes (Hospitalization)
  Sender: FDA-Public Use
  Company Number: AT-PFIZER INC-2014011878

PATIENT
  Sex: Female

DRUGS (2)
  1. CHAMPIX [Suspect]
     Indication: SMOKING CESSATION THERAPY
     Dosage: 0.5 MG, UNK
  2. CHAMPIX [Suspect]
     Dosage: 1 MG, UNK

REACTIONS (3)
  - Cyst [Unknown]
  - Mood altered [Unknown]
  - Malaise [Unknown]
